FAERS Safety Report 9942508 (Version 1)
Quarter: 2014Q1

REPORT INFORMATION
  Report Type: Report from Study
  Country: US (occurrence: US)
  Receive Date: 20140303
  Receipt Date: 20140303
  Transmission Date: 20141002
  Serious: No
  Sender: FDA-Public Use
  Company Number: US-ABBVIE-13P-163-1045025-00

PATIENT
  Age: 46 Year
  Sex: Female

DRUGS (6)
  1. HUMIRA [Suspect]
     Indication: CROHN^S DISEASE
     Dates: start: 201210
  2. CYMBALTA [Concomitant]
     Indication: DEPRESSION
     Dosage: 60 MG DAILY
  3. QUETIAPINE [Concomitant]
     Indication: BIPOLAR DISORDER
     Dosage: AT NIGHT
  4. ZYPREXA [Concomitant]
     Indication: BIPOLAR DISORDER
     Dosage: AT NIGHT
  5. NIACIN [Concomitant]
     Indication: VITAMIN SUPPLEMENTATION
     Dosage: 500 MG DAILY
  6. VITAMIN D [Concomitant]
     Indication: VITAMIN SUPPLEMENTATION
     Dosage: IN AM

REACTIONS (2)
  - Myalgia [Not Recovered/Not Resolved]
  - Arthralgia [Not Recovered/Not Resolved]
